FAERS Safety Report 6076773-1 (Version None)
Quarter: 2009Q1

REPORT INFORMATION
  Report Type: 
  Country: None (occurrence: None)
  Receive Date: 20090211
  Receipt Date: 20090129
  Transmission Date: 20090719
  Serious: Yes (Hospitalization)
  Sender: FDA-Public Use
  Company Number: SPV1-2009-00164

PATIENT
  Age: 23 Month
  Sex: Male
  Weight: 12.5 kg

DRUGS (1)
  1. ELAPRASE [Suspect]
     Indication: MUCOPOLYSACCHARIDOSIS II

REACTIONS (2)
  - CATHETER RELATED COMPLICATION [None]
  - INFUSION RELATED REACTION [None]
